FAERS Safety Report 15438461 (Version 1)
Quarter: 2018Q4

REPORT INFORMATION
  Report Type: Spontaneous
  Country: US (occurrence: US)
  Receive Date: 20180928
  Receipt Date: 20180928
  Transmission Date: 20190204
  Serious: No
  Sender: FDA-Public Use
  Company Number: US-BION-007116

PATIENT
  Age: 92 Year
  Sex: Female

DRUGS (1)
  1. EQUATTE LOPERAMIDE 2 MG CAPSULE [Suspect]
     Active Substance: LOPERAMIDE HYDROCHLORIDE
     Indication: PRODUCT USED FOR UNKNOWN INDICATION
     Dosage: STRENGTH: 2 MG

REACTIONS (1)
  - Expired product administered [Not Recovered/Not Resolved]
